FAERS Safety Report 10336705 (Version 2)
Quarter: 2014Q3

REPORT INFORMATION
  Report Type: Report from Study
  Country: US (occurrence: US)
  Receive Date: 20140723
  Receipt Date: 20140723
  Transmission Date: 20150326
  Serious: Yes (Hospitalization)
  Sender: FDA-Public Use
  Company Number: US-MERCK-1406USA001595

PATIENT
  Age: 72 Year
  Sex: Male

DRUGS (4)
  1. LIPITOR [Concomitant]
     Active Substance: ATORVASTATIN CALCIUM
     Dosage: TOTAL DAILY DOSE 80 MG,  QD
     Route: 048
  2. MK-3475 [Suspect]
     Active Substance: PEMBROLIZUMAB
     Indication: MALIGNANT MELANOMA STAGE IV
     Dosage: 2 MG/M2, Q3W (TOTAL DAILY DOSE 236 MGS)
     Route: 042
     Dates: start: 20140506, end: 20140506
  3. LOSARTAN POTASSIUM TABLETS [Concomitant]
     Active Substance: LOSARTAN POTASSIUM
     Dosage: 100 MG DAILY
     Route: 048
  4. TOPRAL [Concomitant]
     Active Substance: SULTOPRIDE HYDROCHLORIDE
     Dosage: UNK, QD
     Route: 048

REACTIONS (4)
  - Diarrhoea [Recovered/Resolved]
  - Enteritis [Recovered/Resolved]
  - Nausea [Recovered/Resolved]
  - Vomiting [Recovered/Resolved]

NARRATIVE: CASE EVENT DATE: 20140520
